FAERS Safety Report 9290280 (Version 1)
Quarter: 2013Q2

REPORT INFORMATION
  Report Type: Report from Study
  Country: DE (occurrence: DE)
  Receive Date: 20130515
  Receipt Date: 20130515
  Transmission Date: 20140414
  Serious: Yes (Hospitalization)
  Sender: FDA-Public Use
  Company Number: DE-BRISTOL-MYERS SQUIBB COMPANY-18871830

PATIENT
  Age: 54 Year
  Sex: Female
  Weight: 62.8 kg

DRUGS (4)
  1. CARBOPLATIN [Suspect]
     Indication: OVARIAN CANCER
     Dosage: LAST ADMIN:28FEB2013
     Route: 042
     Dates: start: 20130205
  2. PACLITAXEL [Suspect]
     Indication: OVARIAN CANCER
     Dosage: LAST ADMIN:28FEB2013
     Route: 042
     Dates: start: 20130205
  3. BEVACIZUMAB [Suspect]
     Indication: OVARIAN CANCER
     Dosage: LAST ADMIN:28FEB2013
     Route: 042
     Dates: start: 20130205
  4. L-THYROXINE [Concomitant]
     Indication: HYPOTHYROIDISM
     Dosage: 1 DF:50/150 MG?LAST ADMIN:10FEB2013
     Route: 048
     Dates: start: 20030101

REACTIONS (2)
  - Abdominal pain [Recovered/Resolved]
  - Convulsion [Recovered/Resolved]
